FAERS Safety Report 15571141 (Version 1)
Quarter: 2018Q4

REPORT INFORMATION
  Report Type: Report from Study
  Country: FR (occurrence: FR)
  Receive Date: 20181031
  Receipt Date: 20181031
  Transmission Date: 20190205
  Serious: Yes (Other)
  Sender: FDA-Public Use
  Company Number: FR-MYLANLABS-2018M1079343

PATIENT
  Age: 80 Year
  Sex: Male

DRUGS (3)
  1. PROPOFOL. [Suspect]
     Active Substance: PROPOFOL
     Indication: LOCAL ANAESTHESIA
     Route: 065
  2. SUFENTANIL [Suspect]
     Active Substance: SUFENTANIL
     Indication: LOCAL ANAESTHESIA
     Route: 065
  3. MIDAZOLAM [Suspect]
     Active Substance: MIDAZOLAM HYDROCHLORIDE
     Indication: LOCAL ANAESTHESIA
     Route: 065

REACTIONS (1)
  - Postoperative delirium [Recovered/Resolved]
